FAERS Safety Report 6182135-9 (Version None)
Quarter: 2009Q2

REPORT INFORMATION
  Report Type: 
  Country: None (occurrence: None)
  Receive Date: 20090507
  Receipt Date: 20090504
  Transmission Date: 20091009
  Serious: Yes (Death)
  Sender: FDA-Public Use
  Company Number: US-JNJFOC-20090500745

PATIENT
  Sex: Male
  Weight: 92.08 kg

DRUGS (11)
  1. FENTANYL [Suspect]
     Indication: DRUG USE FOR UNKNOWN INDICATION
  2. OPANA ER [Suspect]
     Indication: BACK PAIN
     Route: 048
  3. METHADONE [Suspect]
     Indication: DRUG USE FOR UNKNOWN INDICATION
  4. ATROPINE [Concomitant]
  5. VICODIN [Concomitant]
     Indication: BREAKTHROUGH PAIN
     Route: 048
  6. NEURONTIN [Concomitant]
     Route: 048
  7. BUPROPION HCL [Concomitant]
     Route: 048
  8. CITALOPRAM HYDROBROMIDE [Concomitant]
     Route: 048
  9. TRAZODONE HCL [Concomitant]
  10. MEPROBAMATE [Concomitant]
  11. CARISOPRODOL [Concomitant]

REACTIONS (4)
  - ACCIDENTAL OVERDOSE [None]
  - HEPATOSPLENOMEGALY [None]
  - HYPERTENSIVE HEART DISEASE [None]
  - THERAPEUTIC AGENT TOXICITY [None]
